FAERS Safety Report 8514548-1 (Version None)
Quarter: 2012Q3

REPORT INFORMATION
  Report Type: 
  Country: None (occurrence: None)
  Receive Date: 20120717
  Receipt Date: 20120525
  Transmission Date: 20120928
  Serious: No
  Sender: FDA-Public Use
  Company Number: US-MYLANLABS-2012S1011006

PATIENT
  Age: 79 Year
  Sex: Female

DRUGS (1)
  1. IBANDRONATE SODIUM [Suspect]
     Indication: OSTEOPOROSIS
     Route: 048
     Dates: start: 20120414, end: 20120414

REACTIONS (3)
  - DIARRHOEA [None]
  - ABDOMINAL DISCOMFORT [None]
  - THROAT IRRITATION [None]
